FAERS Safety Report 5944807-8 (Version None)
Quarter: 2008Q4

REPORT INFORMATION
  Report Type: 
  Country: None (occurrence: None)
  Receive Date: 20081107
  Receipt Date: 20081028
  Transmission Date: 20090506
  Serious: Yes (Other)
  Sender: FDA-Public Use
  Company Number: BR-WYE-H06586908

PATIENT
  Age: 55 Year
  Sex: Female

DRUGS (3)
  1. EFFEXOR XR [Suspect]
     Indication: DEPRESSION
     Route: 048
     Dates: start: 20070101, end: 20081001
  2. EFFEXOR XR [Suspect]
     Route: 048
     Dates: start: 20081001
  3. SELOZOK [Concomitant]
     Indication: HYPERTENSION
     Route: 048
     Dates: start: 20060101

REACTIONS (7)
  - BALANCE DISORDER [None]
  - CONDITION AGGRAVATED [None]
  - DIZZINESS [None]
  - HEMIPARESIS [None]
  - HYPERTENSION [None]
  - NEUROLOGICAL SYMPTOM [None]
  - PARAESTHESIA [None]
